FAERS Safety Report 4828891-0 (Version None)
Quarter: 2005Q4

REPORT INFORMATION
  Report Type: 
  Country: None (occurrence: None)
  Receive Date: 20051114
  Receipt Date: 20051114
  Transmission Date: 20060501
  Serious: Yes (Hospitalization, Other)
  Sender: FDA-Public Use
  Company Number: None

PATIENT
  Sex: Male
  Weight: 78 kg

DRUGS (1)
  1. INTERFERON-ALPHA [Suspect]
     Indication: RENAL CELL CARCINOMA STAGE UNSPECIFIED
     Dosage: SEE IMAGE
     Route: 058
     Dates: start: 20050713, end: 20050713

REACTIONS (7)
  - BURSITIS [None]
  - ERYTHEMA [None]
  - FALL [None]
  - JOINT INJURY [None]
  - PAIN [None]
  - REFUSAL OF TREATMENT BY PATIENT [None]
  - SWELLING [None]
